FAERS Safety Report 19276331 (Version 1)
Quarter: 2021Q2

REPORT INFORMATION
  Report Type: Report from Study
  Country: None (occurrence: US)
  Receive Date: 20210519
  Receipt Date: 20210519
  Transmission Date: 20210717
  Serious: Yes (Death, Life-Threatening, Hospitalization)
  Sender: FDA-Public Use
  Company Number: US-ABBVIE-21P-163-3717189-00

PATIENT
  Age: 55 Year
  Sex: Female
  Weight: 60.2 kg

DRUGS (46)
  1. QUETIAPINE. [Concomitant]
     Active Substance: QUETIAPINE
     Indication: INSOMNIA
     Route: 048
     Dates: start: 2015
  2. IPRATROPIUM [Concomitant]
     Active Substance: IPRATROPIUM
     Indication: DYSPNOEA
     Dosage: NEBULIZATION
     Dates: start: 20210102, end: 20210103
  3. FOLIC ACID. [Concomitant]
     Active Substance: FOLIC ACID
     Indication: VITAMIN SUPPLEMENTATION
     Route: 048
     Dates: start: 20210105
  4. OMEPRAZOLE. [Concomitant]
     Active Substance: OMEPRAZOLE
     Indication: GASTROOESOPHAGEAL REFLUX DISEASE
     Route: 048
     Dates: start: 2018
  5. AMPHOTERICIN B LIPOSOME [Concomitant]
     Active Substance: AMPHOTERICIN B
     Indication: PNEUMONIA
     Route: 042
     Dates: start: 20210102, end: 20210105
  6. OXYGEN. [Concomitant]
     Active Substance: OXYGEN
     Indication: DYSPNOEA
     Dosage: NASAL CANNULA
     Dates: start: 20201231
  7. SENNA [Concomitant]
     Active Substance: SENNA LEAF\SENNOSIDES\SENNOSIDES A AND B
     Indication: GASTROINTESTINAL DISORDER
     Route: 048
     Dates: start: 20210107, end: 20210111
  8. SODIUM BICARBONATE. [Concomitant]
     Active Substance: SODIUM BICARBONATE
     Indication: ROUTINE HEALTH MAINTENANCE
     Route: 042
     Dates: start: 20210105, end: 20210111
  9. BUPROPION XL [Concomitant]
     Active Substance: BUPROPION
     Indication: ANXIETY
     Route: 048
     Dates: start: 202010
  10. LISINOPRIL. [Concomitant]
     Active Substance: LISINOPRIL
     Indication: HYPERTENSION
     Route: 048
     Dates: start: 2010
  11. SIMVASTATIN. [Concomitant]
     Active Substance: SIMVASTATIN
     Indication: HYPERLIPIDAEMIA
     Route: 048
     Dates: start: 2010
  12. PANTOPRAZOLE [Concomitant]
     Active Substance: PANTOPRAZOLE
     Indication: GASTROOESOPHAGEAL REFLUX DISEASE
     Route: 048
     Dates: start: 20201229, end: 20210105
  13. AMPHOTERICIN B LIPOSOME [Concomitant]
     Active Substance: AMPHOTERICIN B
     Route: 042
     Dates: start: 20210105, end: 20210105
  14. NORMAL SALINE [Concomitant]
     Active Substance: SODIUM CHLORIDE
     Indication: FLUID REPLACEMENT
     Dosage: 50 ? 100 ML/HR CONTINUOUS
     Route: 042
     Dates: start: 20201229, end: 20210104
  15. ALLOPURINOL. [Concomitant]
     Active Substance: ALLOPURINOL
     Indication: PROPHYLAXIS
     Route: 048
     Dates: start: 20201213
  16. INSULIN GLARGINE [Concomitant]
     Active Substance: INSULIN GLARGINE
     Indication: TYPE 2 DIABETES MELLITUS
     Route: 058
     Dates: start: 20201213
  17. OXYCODONE [Concomitant]
     Active Substance: OXYCODONE
     Indication: PAIN IN EXTREMITY
     Route: 048
     Dates: start: 20201213
  18. NICOTINE. [Concomitant]
     Active Substance: NICOTINE
     Indication: ROUTINE HEALTH MAINTENANCE
     Dosage: 1 PATCH
     Route: 062
     Dates: start: 20201230, end: 20210103
  19. ACETAMINOPHEN. [Concomitant]
     Active Substance: ACETAMINOPHEN
     Indication: PREMEDICATION
     Route: 048
     Dates: start: 20201229, end: 20210110
  20. PHYTONADIONE. [Concomitant]
     Active Substance: PHYTONADIONE
     Indication: INTERNATIONAL NORMALISED RATIO INCREASED
     Route: 048
     Dates: start: 20210103, end: 20210105
  21. NORMAL SALINE [Concomitant]
     Active Substance: SODIUM CHLORIDE
     Indication: HYPOTENSION
     Dosage: 100 ML/HR
     Route: 042
     Dates: start: 20201229, end: 20210103
  22. AMPHOTERICIN B LIPOSOME [Concomitant]
     Active Substance: AMPHOTERICIN B
     Route: 042
     Dates: start: 20210106, end: 20210109
  23. CEFEPIME [Concomitant]
     Active Substance: CEFEPIME HYDROCHLORIDE
     Indication: PROPHYLAXIS
     Route: 042
     Dates: start: 20201231, end: 20210105
  24. NORMAL SALINE [Concomitant]
     Active Substance: SODIUM CHLORIDE
     Indication: PROPHYLAXIS
     Route: 042
     Dates: start: 20201230, end: 20210103
  25. BUDESONIDE FORMOTEROL [Concomitant]
     Active Substance: BUDESONIDE
     Indication: CHRONIC OBSTRUCTIVE PULMONARY DISEASE
     Route: 055
     Dates: start: 20201213
  26. MAGNESIUM SULFATE. [Concomitant]
     Active Substance: MAGNESIUM SULFATE
     Indication: HYPOMAGNESAEMIA
     Dosage: 1?2 G
     Route: 042
     Dates: start: 20210101, end: 20210110
  27. CEFEPIME [Concomitant]
     Active Substance: CEFEPIME HYDROCHLORIDE
     Indication: PYREXIA
  28. DIPHENHYDRAMINE. [Concomitant]
     Active Substance: DIPHENHYDRAMINE
     Indication: PREMEDICATION
     Route: 048
     Dates: start: 20210102, end: 20210103
  29. FUROSEMIDE. [Concomitant]
     Active Substance: FUROSEMIDE
     Indication: DYSPNOEA
     Route: 042
     Dates: start: 20210103, end: 20210103
  30. LIDOCAINE. [Concomitant]
     Active Substance: LIDOCAINE
     Indication: PAIN IN EXTREMITY
     Dosage: 1 PATCH
     Route: 062
     Dates: start: 20201229, end: 20210103
  31. ONDANSETRON [Concomitant]
     Active Substance: ONDANSETRON
     Indication: PREMEDICATION
     Route: 048
     Dates: start: 20201229, end: 20210103
  32. AMPHOTERICIN B LIPOSOME [Concomitant]
     Active Substance: AMPHOTERICIN B
     Route: 042
     Dates: start: 20210110
  33. GUAIFENESIN. [Concomitant]
     Active Substance: GUAIFENESIN
     Indication: COUGH
     Route: 048
     Dates: start: 20210103, end: 20210103
  34. VANCOMYCIN [Concomitant]
     Active Substance: VANCOMYCIN
     Indication: SOFT TISSUE INFECTION
     Route: 042
     Dates: start: 20210101, end: 20210102
  35. WHITE PETROLATUM [Concomitant]
     Active Substance: PETROLATUM
     Indication: EYE DISORDER
     Dosage: 0.5 APPLICATION
     Route: 061
     Dates: start: 20210105, end: 20210111
  36. VENETOCLAX. [Suspect]
     Active Substance: VENETOCLAX
     Indication: MYELODYSPLASTIC SYNDROME
     Dosage: DAYS 1 ? 14 OF EACH 28 DAY CYCLE
     Route: 048
     Dates: start: 20201229, end: 20210103
  37. AZACITIDINE. [Suspect]
     Active Substance: AZACITIDINE
     Indication: MYELODYSPLASTIC SYNDROME
     Dosage: DAYS 1 ? 7 OF EACH 28 DAY CYCLE
     Route: 042
     Dates: start: 20201229, end: 20210103
  38. TIOTROPIUM BROMIDE MONOHYDRATE [Concomitant]
     Active Substance: TIOTROPIUM BROMIDE MONOHYDRATE
     Indication: CHRONIC OBSTRUCTIVE PULMONARY DISEASE
     Route: 055
     Dates: start: 2010
  39. PANTOPRAZOLE [Concomitant]
     Active Substance: PANTOPRAZOLE
     Route: 042
     Dates: start: 20210106
  40. VALACYCLOVIR [Concomitant]
     Active Substance: VALACYCLOVIR HYDROCHLORIDE
     Indication: ANTIVIRAL PROPHYLAXIS
     Route: 048
     Dates: start: 20201229
  41. HYDROCORTISONE SOD SUCCINATE [Concomitant]
     Indication: DYSPNOEA
     Dosage: 25?50 MG
     Route: 042
     Dates: start: 20210102
  42. ACETAMINOPHEN. [Concomitant]
     Active Substance: ACETAMINOPHEN
     Indication: PYREXIA
  43. METRONIDAZOLE. [Concomitant]
     Active Substance: METRONIDAZOLE
     Indication: PYREXIA
     Route: 042
     Dates: start: 20201231, end: 20210105
  44. CHLORHEXIDINE [Concomitant]
     Active Substance: CHLORHEXIDINE
     Indication: DENTAL DISORDER PROPHYLAXIS
     Route: 048
     Dates: start: 20210105
  45. POLYETHYLENE GLYCOL [Concomitant]
     Active Substance: POLYETHYLENE GLYCOLS
     Indication: GASTROINTESTINAL DISORDER
     Route: 048
     Dates: start: 20210107, end: 20210110
  46. PRO?STAT SUGAR FREE LIQUID [Concomitant]
     Indication: NUTRITIONAL SUPPLEMENTATION
     Dosage: 1 PACKET
     Route: 048
     Dates: start: 20210106

REACTIONS (4)
  - Respiratory failure [Recovered/Resolved]
  - Hypotension [Recovered/Resolved]
  - Respiratory failure [Fatal]
  - Urinary tract infection enterococcal [Unknown]

NARRATIVE: CASE EVENT DATE: 20210103
